FAERS Safety Report 17926523 (Version 3)
Quarter: 2021Q2

REPORT INFORMATION
  Report Type: Spontaneous
  Country: US (occurrence: US)
  Receive Date: 20200623
  Receipt Date: 20210629
  Transmission Date: 20210717
  Serious: Yes (Other)
  Sender: FDA-Public Use
  Company Number: US-TEVA-2020-US-1789696

PATIENT
  Age: 43 Year
  Sex: Male

DRUGS (1)
  1. METRONIDAZOLE TEVA [Suspect]
     Active Substance: METRONIDAZOLE
     Indication: CROHN^S DISEASE
     Route: 065

REACTIONS (1)
  - Coeliac disease [Unknown]

NARRATIVE: CASE EVENT DATE: 202004
